FAERS Safety Report 7612319-1 (Version None)
Quarter: 2011Q3

REPORT INFORMATION
  Report Type: 
  Country: None (occurrence: None)
  Receive Date: 20110715
  Receipt Date: 20110705
  Transmission Date: 20111222
  Serious: Yes (Other)
  Sender: FDA-Public Use
  Company Number: JP-CELGENEUS-087-CCAZA-11071281

PATIENT
  Sex: Male

DRUGS (16)
  1. CARNACULIN [Concomitant]
     Dosage: 150 MILLIGRAM
     Route: 048
  2. ZOLPIDEM [Concomitant]
     Dosage: 10 MILLIGRAM
     Route: 048
  3. PANTOSIN [Concomitant]
     Dosage: 100 MILLIGRAM
     Route: 048
  4. LYRICA [Concomitant]
     Dosage: 150 MILLIGRAM
     Route: 048
     Dates: end: 20110510
  5. POTACOL-R [Concomitant]
     Route: 051
     Dates: start: 20110506, end: 20110524
  6. ADALAT CC [Concomitant]
     Dosage: 200 MILLIGRAM
     Route: 048
  7. LYRICA [Concomitant]
     Dosage: 75 MILLIGRAM
     Route: 048
  8. TANNALBIN [Concomitant]
     Dosage: 3 GRAM
     Route: 048
     Dates: end: 20110530
  9. MAGNESIUM SULFATE [Concomitant]
     Dosage: 330 MILLIGRAM
     Route: 048
  10. POTACOL-R [Concomitant]
     Route: 051
     Dates: start: 20110614, end: 20110621
  11. AZACITIDINE [Suspect]
     Indication: MYELODYSPLASTIC SYNDROME
     Dosage: 75 MILLIGRAM/SQ. METER
     Route: 051
     Dates: start: 20110411, end: 20110419
  12. LOPERAMIDE HYDROCHLORIDE [Concomitant]
     Dosage: 1 MILLIGRAM
     Route: 048
     Dates: end: 20110530
  13. EPARA [Concomitant]
     Dosage: 600 MILLIGRAM
     Route: 048
  14. AZACITIDINE [Suspect]
     Dosage: 37.5 MILLIGRAM/SQ. METER
     Route: 051
     Dates: start: 20110516, end: 20110524
  15. AZACITIDINE [Suspect]
     Dosage: 60 MILLIGRAM/SQ. METER
     Route: 051
     Dates: start: 20110613, end: 20110621
  16. OLMESARTAN MEDOXOMIL [Concomitant]
     Dosage: 20 MILLIGRAM
     Route: 048

REACTIONS (11)
  - RED BLOOD CELL COUNT DECREASED [None]
  - HAEMOGLOBIN DECREASED [None]
  - PULMONARY HAEMORRHAGE [None]
  - ERYTHROBLAST COUNT DECREASED [None]
  - BLOOD UREA INCREASED [None]
  - PLATELET COUNT DECREASED [None]
  - BLOOD CREATININE INCREASED [None]
  - BLOOD SODIUM DECREASED [None]
  - WHITE BLOOD CELL COUNT DECREASED [None]
  - NEUTROPHIL COUNT DECREASED [None]
  - DIARRHOEA [None]
